FAERS Safety Report 23544634 (Version 6)
Quarter: 2024Q4

REPORT INFORMATION
  Report Type: Spontaneous
  Country: US (occurrence: US)
  Receive Date: 20240220
  Receipt Date: 20241202
  Transmission Date: 20250114
  Serious: Yes (Hospitalization, Other)
  Sender: PFIZER
  Company Number: US-PFIZER INC-202101715634

PATIENT
  Age: 96 Year
  Sex: Female

DRUGS (2)
  1. PREMARIN [Suspect]
     Active Substance: ESTROGENS, CONJUGATED
     Indication: Bladder spasm
     Dosage: 0.5 G, 2X/WEEK
     Route: 067
  2. PREMARIN [Suspect]
     Active Substance: ESTROGENS, CONJUGATED
     Dosage: 5 MG, 2X/WEEK
     Route: 067

REACTIONS (4)
  - Insomnia [Unknown]
  - Bladder disorder [Unknown]
  - Off label use [Unknown]
  - Off label use [Unknown]
